FAERS Safety Report 22047019 (Version 1)
Quarter: 2023Q1

REPORT INFORMATION
  Report Type: Spontaneous
  Country: US (occurrence: US)
  Receive Date: 20230301
  Receipt Date: 20230301
  Transmission Date: 20230417
  Serious: Yes (Hospitalization, Other)
  Sender: FDA-Public Use
  Company Number: US-BRISTOL-MYERS SQUIBB COMPANY-2023-029011

PATIENT
  Age: 72 Year
  Sex: Female

DRUGS (2)
  1. NIVOLUMAB [Suspect]
     Active Substance: NIVOLUMAB
     Indication: Myelodysplastic syndrome
  2. IPILIMUMAB [Suspect]
     Active Substance: IPILIMUMAB
     Indication: Myelodysplastic syndrome

REACTIONS (3)
  - Immune-mediated lung disease [Unknown]
  - Off label use [Unknown]
  - Skin disorder [Unknown]
